FAERS Safety Report 12571999 (Version 4)
Quarter: 2017Q1

REPORT INFORMATION
  Report Type: Spontaneous
  Country: US (occurrence: US)
  Receive Date: 20160719
  Receipt Date: 20170111
  Transmission Date: 20170428
  Serious: No
  Sender: FDA-Public Use
  Company Number: US-ALKERMES INC.-ALK-2016-001807

PATIENT
  Age: 45 Year
  Sex: Female
  Weight: 89.8 kg

DRUGS (7)
  1. BUSPIRONE [Concomitant]
     Active Substance: BUSPIRONE HYDROCHLORIDE
     Indication: ANXIETY
     Dosage: 1 DF, UNK
     Route: 048
  2. EFEXOR [Concomitant]
     Active Substance: VENLAFAXINE HYDROCHLORIDE
     Indication: PRODUCT USED FOR UNKNOWN INDICATION
  3. ARISTADA [Suspect]
     Active Substance: ARIPIPRAZOLE LAUROXIL
     Indication: SCHIZOPHRENIA
     Dosage: 662 MG, Q4WK
     Route: 030
     Dates: start: 20160531
  4. ARISTADA [Suspect]
     Active Substance: ARIPIPRAZOLE LAUROXIL
     Dosage: 882 MG, QMO
     Route: 030
     Dates: start: 20160824
  5. MIRTAZAPINE. [Concomitant]
     Active Substance: MIRTAZAPINE
     Indication: INSOMNIA
     Dosage: 1 DF, QD
     Route: 048
  6. BENZTROPINE [Concomitant]
     Active Substance: BENZTROPINE
     Indication: TREMOR
     Dosage: 1 DF, QID
     Route: 048
  7. KLONOPIN [Concomitant]
     Active Substance: CLONAZEPAM
     Indication: TREMOR
     Dosage: 1 DF, UNK
     Route: 048

REACTIONS (12)
  - Injection site pain [Not Recovered/Not Resolved]
  - Schizophrenia [Unknown]
  - Pollakiuria [Recovered/Resolved]
  - Injection site induration [Not Recovered/Not Resolved]
  - Hallucination, auditory [Recovered/Resolved]
  - Weight increased [Recovered/Resolved]
  - Dry mouth [Recovered/Resolved]
  - Injection site reaction [Recovered/Resolved]
  - Drug effect decreased [Recovered/Resolved]
  - Injection site mass [Not Recovered/Not Resolved]
  - Fatigue [Unknown]
  - Somnolence [Not Recovered/Not Resolved]

NARRATIVE: CASE EVENT DATE: 201605
